FAERS Safety Report 6852470-7 (Version None)
Quarter: 2010Q3

REPORT INFORMATION
  Report Type: 
  Country: None (occurrence: None)
  Receive Date: 20100717
  Receipt Date: 20071114
  Transmission Date: 20110219
  Serious: No
  Sender: FDA-Public Use
  Company Number: US-PFIZER INC-2007097945

PATIENT
  Sex: Male
  Weight: 113.6 kg

DRUGS (1)
  1. CHANTIX [Suspect]
     Indication: SMOKING CESSATION THERAPY
     Route: 048
     Dates: start: 20071101, end: 20071101

REACTIONS (6)
  - ABNORMAL DREAMS [None]
  - ANGER [None]
  - MOOD ALTERED [None]
  - RASH [None]
  - SLEEP TALKING [None]
  - SOMNOLENCE [None]
